FAERS Safety Report 24642516 (Version 1)
Quarter: 2024Q4

REPORT INFORMATION
  Report Type: Spontaneous
  Country: US (occurrence: US)
  Receive Date: 20241120
  Receipt Date: 20241120
  Transmission Date: 20250114
  Serious: No
  Sender: BRISTOL-MYERS SQUIBB COMPANY
  Company Number: US-BRISTOL-MYERS SQUIBB COMPANY-2024-171420

PATIENT

DRUGS (3)
  1. COBENFY [Suspect]
     Active Substance: TROSPIUM CHLORIDE\XANOMELINE
     Indication: Product used for unknown indication
  2. INVEGA HAFYERA [Suspect]
     Active Substance: PALIPERIDONE PALMITATE
     Indication: Product used for unknown indication
  3. DIVALPROEX SODIUM [Suspect]
     Active Substance: DIVALPROEX SODIUM
     Indication: Product used for unknown indication

REACTIONS (2)
  - Fatigue [Unknown]
  - Somnolence [Unknown]
